FAERS Safety Report 17435548 (Version 1)
Quarter: 2020Q1

REPORT INFORMATION
  Report Type: Spontaneous
  Country: US (occurrence: US)
  Receive Date: 20200205
  Receipt Date: 20200205
  Transmission Date: 20200409
  Serious: Yes (Disabling)
  Sender: FDA-Public Use
  Company Number: None

PATIENT
  Age: 58 Year
  Sex: Male
  Weight: 74.84 kg

DRUGS (5)
  1. TALTZ [Suspect]
     Active Substance: IXEKIZUMAB
     Indication: PSORIASIS
     Dosage: OTHER DOSE: 2 FIRST TIME Y 1 SECOND TIME
     Dates: start: 20191213, end: 20200117
  2. PHOSPHORUS [Concomitant]
     Active Substance: PHOSPHORUS
  3. VITAMIN B [Concomitant]
     Active Substance: VITAMIN B
  4. PROBIOTICS [Concomitant]
     Active Substance: PROBIOTICS NOS
  5. VITAMIN D [Concomitant]
     Active Substance: VITAMIN D NOS

REACTIONS (18)
  - Depression [None]
  - Dehydration [None]
  - Nausea [None]
  - Abdominal pain [None]
  - Impaired quality of life [None]
  - Eye irritation [None]
  - Gingival ulceration [None]
  - Palatal disorder [None]
  - Dry skin [None]
  - Tongue injury [None]
  - Dizziness [None]
  - Chromaturia [None]
  - Decreased appetite [None]
  - White blood cell count increased [None]
  - Tongue disorder [None]
  - Anxiety [None]
  - Glossitis [None]
  - Hyperhidrosis [None]

NARRATIVE: CASE EVENT DATE: 20191216
